FAERS Safety Report 8672930 (Version 3)
Quarter: 2018Q4

REPORT INFORMATION
  Report Type: Spontaneous
  Country: FR (occurrence: FR)
  Receive Date: 20120719
  Receipt Date: 20181101
  Transmission Date: 20190205
  Serious: Yes (Hospitalization, Other)
  Sender: FDA-Public Use
  Company Number: FR-ASTRAZENECA-2012SE48382

PATIENT
  Age: 18549 Day
  Sex: Male

DRUGS (10)
  1. XEROQUEL [Suspect]
     Active Substance: QUETIAPINE FUMARATE
     Indication: PRODUCT USED FOR UNKNOWN INDICATION
     Route: 048
     Dates: start: 20120524, end: 20120524
  2. TERCIAN [Interacting]
     Active Substance: CYAMEMAZINE
     Indication: PRODUCT USED FOR UNKNOWN INDICATION
     Route: 048
     Dates: end: 20120522
  3. EFFEXOR [Concomitant]
     Active Substance: VENLAFAXINE HYDROCHLORIDE
     Indication: PRODUCT USED FOR UNKNOWN INDICATION
     Route: 048
     Dates: start: 20120521, end: 20120522
  4. XEROQUEL [Interacting]
     Active Substance: QUETIAPINE FUMARATE
     Indication: PRODUCT USED FOR UNKNOWN INDICATION
     Route: 048
     Dates: start: 20120525
  5. ABILIFY [Concomitant]
     Active Substance: ARIPIPRAZOLE
     Indication: PRODUCT USED FOR UNKNOWN INDICATION
     Route: 048
     Dates: start: 20120521, end: 20120523
  6. TERCIAN [Interacting]
     Active Substance: CYAMEMAZINE
     Indication: PRODUCT USED FOR UNKNOWN INDICATION
     Dosage: 50 DROPS IN THE MORNING, 50 DROPS AT MIDDAY AND 50 DROPS AS REQUIRED 25 MG
     Route: 048
     Dates: start: 20120523, end: 20120531
  7. TERCIAN [Interacting]
     Active Substance: CYAMEMAZINE
     Indication: PRODUCT USED FOR UNKNOWN INDICATION
     Route: 048
     Dates: start: 20120522
  8. LEPTICUR [Concomitant]
     Active Substance: TROPATEPINE HYDROCHLORIDE
     Indication: PRODUCT USED FOR UNKNOWN INDICATION
     Dosage: 10.0MG UNKNOWN
     Route: 048
     Dates: start: 20120525
  9. GLIMEPIRIDE. [Concomitant]
     Active Substance: GLIMEPIRIDE
     Indication: TYPE 2 DIABETES MELLITUS
     Route: 048
  10. RISPERDAL [Concomitant]
     Active Substance: RISPERIDONE
     Indication: PRODUCT USED FOR UNKNOWN INDICATION
     Route: 048
     Dates: start: 20120515

REACTIONS (12)
  - Phlebitis [Unknown]
  - Oedema peripheral [Unknown]
  - Drug interaction [Recovered/Resolved]
  - Fibrin D dimer increased [Unknown]
  - Catatonia [Recovering/Resolving]
  - Blood creatine phosphokinase increased [Recovered/Resolved]
  - Enterococcus test positive [Unknown]
  - Hyperthermia [Unknown]
  - Psychomotor retardation [Unknown]
  - Somnolence [Unknown]
  - Constipation [Unknown]
  - Urinary retention [Recovered/Resolved]

NARRATIVE: CASE EVENT DATE: 20120526
